FAERS Safety Report 9206783 (Version 1)
Quarter: 2013Q2

REPORT INFORMATION
  Report Type: Report from Study
  Country: US (occurrence: US)
  Receive Date: 20130403
  Receipt Date: 20130403
  Transmission Date: 20140414
  Serious: No
  Sender: FDA-Public Use
  Company Number: US-VERTEX PHARMACEUTICALS INC.-2013-004368

PATIENT
  Age: 54 Year
  Sex: Male
  Weight: 68 kg

DRUGS (9)
  1. VX-950 (TELAPREVIR) [Suspect]
     Indication: HEPATITIS C
     Dosage: 750 MG, TID
     Route: 048
     Dates: start: 20130320
  2. PEGASYS [Suspect]
     Indication: HEPATITIS C
     Dosage: 180 MCG/M
  3. RIBAVIRIN [Suspect]
     Indication: HEPATITIS C
     Dosage: 200 MG, UNK
  4. ISENTRESS [Concomitant]
     Dosage: 25 MG, UNK
  5. KOGENATE FS [Concomitant]
     Indication: HAEMOPHILIA
     Dosage: 1000/BS
  6. LOVAZA [Concomitant]
     Dosage: 1 G, UNK
  7. LEXAPRO [Concomitant]
     Dosage: 200 MG, UNK
  8. MIRAPEX [Concomitant]
     Dosage: 0.375 MG, UNK
  9. TRUVADA [Concomitant]

REACTIONS (6)
  - Pyrexia [Unknown]
  - Chills [Unknown]
  - Pain [Unknown]
  - Anorectal discomfort [Unknown]
  - Diarrhoea [Unknown]
  - Haematochezia [Unknown]
